FAERS Safety Report 8570492-5 (Version None)
Quarter: 2012Q3

REPORT INFORMATION
  Report Type: 
  Country: None (occurrence: None)
  Receive Date: 20120803
  Receipt Date: 20120720
  Transmission Date: 20120928
  Serious: No
  Sender: FDA-Public Use
  Company Number: US-ASTRAZENECA-2012SE51842

PATIENT
  Age: 77 Year
  Sex: Female

DRUGS (1)
  1. SEROQUEL XR [Suspect]
     Indication: MENTAL DISORDER
     Route: 048

REACTIONS (4)
  - HEAD INJURY [None]
  - LIMB INJURY [None]
  - ROAD TRAFFIC ACCIDENT [None]
  - ADVERSE EVENT [None]
